FAERS Safety Report 9208643 (Version 1)
Quarter: 2013Q2

REPORT INFORMATION
  Report Type: Spontaneous
  Country: FR (occurrence: FR)
  Receive Date: 20130404
  Receipt Date: 20130404
  Transmission Date: 20140414
  Serious: Yes (Hospitalization, Other)
  Sender: FDA-Public Use
  Company Number: FR-PFIZER INC-2013102573

PATIENT
  Age: 72 Year
  Sex: Female

DRUGS (7)
  1. SOLU-MEDROL [Suspect]
     Indication: SCIATICA
     Dosage: 120 MG A DAY
     Route: 030
     Dates: start: 20121215, end: 20121220
  2. SOLU-MEDROL [Suspect]
     Dosage: 80 MG A DAY
     Route: 030
     Dates: start: 20121220, end: 20121225
  3. SOLU-MEDROL [Suspect]
     Dosage: 120 MG A DAY
     Route: 030
     Dates: start: 20130103, end: 20130110
  4. SOLU-MEDROL [Suspect]
     Dosage: 80 MG A DAY
     Route: 030
     Dates: start: 20130111, end: 20130116
  5. BI-PROFENID [Suspect]
     Indication: SCIATICA
     Dosage: 100 MG, 2X/DAY
     Route: 048
     Dates: start: 20121229
  6. KETOPROFEN [Suspect]
     Indication: SCIATICA
     Dosage: 100 MG, 2X/DAY
     Route: 048
     Dates: start: 20130123, end: 20130125
  7. LAMALINE [Concomitant]
     Indication: PAIN

REACTIONS (6)
  - Lung disorder [Recovered/Resolved]
  - Septic shock [Recovered/Resolved]
  - Pneumonia [Unknown]
  - Cardiac failure [Unknown]
  - Livedo reticularis [None]
  - Hypotension [None]
